FAERS Safety Report 15196896 (Version 8)
Quarter: 2025Q3

REPORT INFORMATION
  Report Type: Other
  Country: CA (occurrence: CA)
  Receive Date: 20180725
  Receipt Date: 20250804
  Transmission Date: 20251021
  Serious: Yes (Other)
  Sender: PFIZER
  Company Number: CA-TAKEDA-2018TUS022783

PATIENT
  Age: 31 Year
  Sex: Female
  Weight: 52 kg

DRUGS (30)
  1. PANTOPRAZOLE [Suspect]
     Active Substance: PANTOPRAZOLE
  2. PANTOPRAZOLE [Suspect]
     Active Substance: PANTOPRAZOLE
  3. ONDANSETRON [Suspect]
     Active Substance: ONDANSETRON
     Route: 042
  4. ONDANSETRON [Suspect]
     Active Substance: ONDANSETRON
     Route: 065
  5. ONDANSETRON [Suspect]
     Active Substance: ONDANSETRON
  6. LORAZEPAM [Suspect]
     Active Substance: LORAZEPAM
     Dosage: 0.5 MG, 1X/DAY (AT BEDTIME)
     Route: 065
  7. LORAZEPAM [Suspect]
     Active Substance: LORAZEPAM
     Dosage: 0.5 MILLIGRAM, QD
  8. HYDROMORPHONE HYDROCHLORIDE [Suspect]
     Active Substance: HYDROMORPHONE HYDROCHLORIDE
     Indication: Traumatic pain
     Dosage: 8 MG, EVERY 8 HOURS
     Route: 042
  9. HYDROMORPHONE HYDROCHLORIDE [Suspect]
     Active Substance: HYDROMORPHONE HYDROCHLORIDE
     Dosage: 8 MG, EVERY 8 HOURS
     Route: 048
  10. HYDROMORPHONE HYDROCHLORIDE [Suspect]
     Active Substance: HYDROMORPHONE HYDROCHLORIDE
     Dosage: 8 MG, EVERY 4 HOURS
     Route: 065
  11. HYDROMORPHONE HYDROCHLORIDE [Suspect]
     Active Substance: HYDROMORPHONE HYDROCHLORIDE
     Route: 048
  12. HYDROMORPHONE HYDROCHLORIDE [Suspect]
     Active Substance: HYDROMORPHONE HYDROCHLORIDE
     Route: 048
  13. FENTANYL [Suspect]
     Active Substance: FENTANYL
     Indication: Traumatic pain
     Route: 065
  14. FENTANYL [Suspect]
     Active Substance: FENTANYL
     Route: 065
  15. FENTANYL [Suspect]
     Active Substance: FENTANYL
  16. AMITRIPTYLINE [Suspect]
     Active Substance: AMITRIPTYLINE
     Dosage: 25 MG, 1X/DAY (AT BEDTIME)
     Route: 048
  17. AMITRIPTYLINE [Suspect]
     Active Substance: AMITRIPTYLINE
     Dosage: 25 MILLIGRAM, QD
     Route: 065
  18. AMITRIPTYLINE [Suspect]
     Active Substance: AMITRIPTYLINE
  19. ENOXAPARIN [Suspect]
     Active Substance: ENOXAPARIN
     Route: 065
  20. ENOXAPARIN [Suspect]
     Active Substance: ENOXAPARIN
  21. HYDROMORPHONE [Suspect]
     Active Substance: HYDROMORPHONE
     Indication: Traumatic pain
     Dosage: 24 MG, 3X/DAY
     Route: 048
  22. HYDROMORPHONE [Suspect]
     Active Substance: HYDROMORPHONE
     Dosage: 24 MILLIGRAM, EVERY 8 HOURS
     Route: 048
  23. HYDROMORPHONE [Suspect]
     Active Substance: HYDROMORPHONE
     Dosage: 24 MILLIGRAM, TID
  24. GRAVOL [Suspect]
     Active Substance: DIMENHYDRINATE
     Route: 065
  25. GRAVOL [Suspect]
     Active Substance: DIMENHYDRINATE
  26. GRAVOL [Suspect]
     Active Substance: DIMENHYDRINATE
  27. PROCHLORPERAZINE [Suspect]
     Active Substance: PROCHLORPERAZINE
     Route: 065
  28. PROCHLORPERAZINE [Suspect]
     Active Substance: PROCHLORPERAZINE
     Route: 042
  29. PROCHLORPERAZINE [Suspect]
     Active Substance: PROCHLORPERAZINE
  30. ONDANSETRON [Concomitant]
     Active Substance: ONDANSETRON
     Route: 065

REACTIONS (2)
  - Drug withdrawal syndrome [Recovered/Resolved]
  - Maternal exposure during pregnancy [Unknown]
